FAERS Safety Report 5269241-8 (Version None)
Quarter: 2007Q1

REPORT INFORMATION
  Report Type: 
  Country: None (occurrence: None)
  Receive Date: 20070319
  Receipt Date: 20070312
  Transmission Date: 20070707
  Serious: Yes (Hospitalization)
  Sender: FDA-Public Use
  Company Number: FR-ABBOTT-05P-056-0289961-00

PATIENT
  Age: 58 Year
  Sex: Male

DRUGS (6)
  1. ZECLAR [Suspect]
     Indication: PULMONARY TUBERCULOSIS
     Route: 048
     Dates: start: 20041230, end: 20061120
  2. ETHAMBUTOL HYDROCHLORIDE [Suspect]
     Indication: PULMONARY TUBERCULOSIS
     Route: 048
     Dates: start: 20040925, end: 20050104
  3. RIFABUTINE [Suspect]
     Indication: PULMONARY TUBERCULOSIS
     Route: 048
     Dates: start: 20041231, end: 20061120
  4. MOXIFLOXACIN HCL [Concomitant]
     Indication: TUBERCULOSIS
     Route: 048
  5. ISONIAZID [Concomitant]
     Indication: TUBERCULOSIS
     Route: 048
     Dates: start: 20040925
  6. RUFINAMIDE [Concomitant]
     Indication: TUBERCULOSIS
     Route: 048
     Dates: start: 20040925

REACTIONS (1)
  - OPTIC NEURITIS [None]
